FAERS Safety Report 6195408-0 (Version None)
Quarter: 2009Q2

REPORT INFORMATION
  Report Type: 
  Country: None (occurrence: None)
  Receive Date: 20090519
  Receipt Date: 20090430
  Transmission Date: 20091009
  Serious: No
  Sender: FDA-Public Use
  Company Number: US-BAYER-200919783NA

PATIENT
  Age: 62 Year
  Sex: Female
  Weight: 54 kg

DRUGS (5)
  1. MAGNEVIST [Suspect]
     Indication: NUCLEAR MAGNETIC RESONANCE IMAGING BRAIN
     Dosage: LINE FLUSHED
     Route: 042
     Dates: start: 20090429, end: 20090429
  2. NIMENDA [Concomitant]
  3. ARICEPT [Concomitant]
  4. LISINOPRIL [Concomitant]
  5. SIMVASTATIN [Concomitant]

REACTIONS (1)
  - URTICARIA [None]
